FAERS Safety Report 5351723-1 (Version None)
Quarter: 2007Q2

REPORT INFORMATION
  Report Type: 
  Country: None (occurrence: None)
  Receive Date: 20070521
  Receipt Date: 20070222
  Transmission Date: 20071010
  Serious: No
  Sender: FDA-Public Use
  Company Number: WAES 0702USA04043

PATIENT
  Age: 64 Year
  Sex: Female

DRUGS (9)
  1. JANUVIA [Suspect]
     Indication: DIABETES MELLITUS
     Dosage: 100 MG/ DAILY/ PO
     Route: 048
     Dates: start: 20070220
  2. EMANIL [Concomitant]
  3. MICRO-K [Concomitant]
  4. MOBIC [Concomitant]
  5. ZESTORETIC [Concomitant]
  6. THERAPY UNSPECIFIED [Concomitant]
  7. ASPIRIN [Concomitant]
  8. CALCIUM (UNSPECIFIED) [Concomitant]
  9. MULTI-VITAMINS [Concomitant]

REACTIONS (1)
  - ASTHENIA [None]
